FAERS Safety Report 4992091-4 (Version None)
Quarter: 2006Q2

REPORT INFORMATION
  Report Type: 
  Country: None (occurrence: None)
  Receive Date: 20060504
  Receipt Date: 20051025
  Transmission Date: 20061013
  Serious: Yes (Hospitalization)
  Sender: FDA-Public Use
  Company Number: US-MERCK-0510USA09284

PATIENT
  Age: 57 Year
  Sex: Female
  Weight: 82 kg

DRUGS (7)
  1. VIOXX [Suspect]
     Indication: FIBROMYALGIA
     Route: 048
     Dates: start: 20010608, end: 20040701
  2. CELEXA [Concomitant]
     Route: 048
  3. LIPITOR [Concomitant]
     Route: 048
  4. PROTONIX [Concomitant]
     Route: 048
  5. THYROLAR [Concomitant]
     Route: 048
  6. ALBUTEROL [Concomitant]
     Route: 055
  7. ULTRAM [Concomitant]
     Route: 065

REACTIONS (7)
  - CAROTID ARTERY STENOSIS [None]
  - CEREBROVASCULAR ACCIDENT [None]
  - CHEST PAIN [None]
  - GASTROOESOPHAGEAL REFLUX DISEASE [None]
  - HYPERTENSION [None]
  - MYOCARDIAL INFARCTION [None]
  - MYOCARDIAL ISCHAEMIA [None]
